FAERS Safety Report 15996673 (Version 1)
Quarter: 2019Q1

REPORT INFORMATION
  Report Type: Report from Study
  Country: RU (occurrence: RU)
  Receive Date: 20190222
  Receipt Date: 20190222
  Transmission Date: 20190418
  Serious: Yes (Other)
  Sender: FDA-Public Use
  Company Number: RU-ASTRAZENECA-2019SE29547

PATIENT
  Age: 39 Year
  Sex: Male
  Weight: 88 kg

DRUGS (5)
  1. ASPIRIN. [Concomitant]
     Active Substance: ASPIRIN
  2. BRILINTA [Suspect]
     Active Substance: TICAGRELOR
     Indication: ANGINA UNSTABLE
     Route: 048
     Dates: start: 201810
  3. ATORVASTATIN [Concomitant]
     Active Substance: ATORVASTATIN
  4. GLYCINE. [Concomitant]
     Active Substance: GLYCINE
  5. PRESTARIUM [Concomitant]
     Active Substance: PERINDOPRIL

REACTIONS (1)
  - Vascular stent stenosis [Not Recovered/Not Resolved]
